FAERS Safety Report 9911358 (Version 2)
Quarter: 2014Q1

REPORT INFORMATION
  Report Type: Spontaneous
  Country: US (occurrence: US)
  Receive Date: 20140219
  Receipt Date: 20140307
  Transmission Date: 20141002
  Serious: Yes (Hospitalization)
  Sender: FDA-Public Use
  Company Number: US-SA-2014SA017442

PATIENT
  Age: 40 Year
  Sex: Female

DRUGS (4)
  1. AUBAGIO [Suspect]
     Indication: MULTIPLE SCLEROSIS
     Route: 065
  2. ETHYL FUMARATE ZINC/DIMETHYL FUMARATE/ETHYL FUMARATE MAGNESIUM/ETHYL FUMARATE CALCIUM [Suspect]
     Indication: PRODUCT USED FOR UNKNOWN INDICATION
     Route: 065
  3. FAMOTIDINE [Concomitant]
  4. PROCHLORPERAZINE [Concomitant]

REACTIONS (2)
  - Renal failure acute [Unknown]
  - Dehydration [Unknown]
